FAERS Safety Report 12508949 (Version 1)
Quarter: 2016Q2

REPORT INFORMATION
  Report Type: Spontaneous
  Country: US (occurrence: US)
  Receive Date: 20160629
  Receipt Date: 20160629
  Transmission Date: 20160815
  Serious: No
  Sender: FDA-Public Use
  Company Number: US-WATSON-2015-20875

PATIENT
  Age: 83 Year
  Sex: Male
  Weight: 68.3 kg

DRUGS (3)
  1. SORIATANE [Suspect]
     Active Substance: ACITRETIN
     Indication: PSORIASIS
     Dosage: 25 MG, UNK
     Route: 048
     Dates: start: 2010
  2. SORIATANE [Suspect]
     Active Substance: ACITRETIN
     Dosage: 10 MG, UNK, UNCLEAR IF THE PATIENT SWITCHED BACK TO 25 MG STRENGHT
     Route: 048
  3. ACITRETIN. [Suspect]
     Active Substance: ACITRETIN
     Indication: PSORIASIS
     Dosage: 25 MG, UNK
     Route: 048
     Dates: start: 201601

REACTIONS (5)
  - Exfoliative rash [Unknown]
  - Rash papular [Unknown]
  - Drug ineffective [Unknown]
  - Rash pruritic [Unknown]
  - Psoriasis [Unknown]

NARRATIVE: CASE EVENT DATE: 201603
